FAERS Safety Report 11348094 (Version 2)
Quarter: 2022Q1

REPORT INFORMATION
  Report Type: Report from Study
  Country: DE (occurrence: DE)
  Receive Date: 20150806
  Receipt Date: 20220331
  Transmission Date: 20220423
  Serious: Yes (Hospitalization)
  Sender: FDA-Public Use
  Company Number: DE-BAXALTA-2015BLT000886

PATIENT
  Age: 50 Year
  Weight: 72 kg

DRUGS (20)
  1. ADVATE [Suspect]
     Active Substance: ANTIHEMOPHILIC FACTOR, HUMAN RECOMBINANT
     Indication: Prophylaxis
     Dosage: 2000 INTERNATIONAL UNIT, 3/WEEK
     Route: 042
     Dates: start: 20101015, end: 20150723
  2. ADVATE [Suspect]
     Active Substance: ANTIHEMOPHILIC FACTOR, HUMAN RECOMBINANT
     Indication: Prophylaxis
     Dosage: 2000 INTERNATIONAL UNIT, 3/WEEK
     Route: 042
     Dates: start: 20101015, end: 20150723
  3. ADVATE [Suspect]
     Active Substance: ANTIHEMOPHILIC FACTOR, HUMAN RECOMBINANT
     Indication: Prophylaxis
     Dosage: 2000 INTERNATIONAL UNIT, 3/WEEK
     Route: 042
     Dates: start: 20101015, end: 20150723
  4. ADVATE [Suspect]
     Active Substance: ANTIHEMOPHILIC FACTOR, HUMAN RECOMBINANT
     Indication: Factor VIII deficiency
  5. ADVATE [Suspect]
     Active Substance: ANTIHEMOPHILIC FACTOR, HUMAN RECOMBINANT
     Indication: Factor VIII deficiency
  6. ADVATE [Suspect]
     Active Substance: ANTIHEMOPHILIC FACTOR, HUMAN RECOMBINANT
     Indication: Factor VIII deficiency
  7. LOPINAVIR [Concomitant]
     Active Substance: LOPINAVIR
     Indication: Antiretroviral therapy
     Dosage: 100 MG, 2-0-2
     Route: 048
     Dates: start: 20091215, end: 2016
  8. RITONAVIR [Concomitant]
     Active Substance: RITONAVIR
     Indication: Antiretroviral therapy
     Dosage: 25 MG, 2-0-2
     Route: 048
     Dates: start: 20091215, end: 2016
  9. RALTEGRAVIR [Concomitant]
     Active Substance: RALTEGRAVIR
     Indication: Antiretroviral therapy
     Dosage: 400 MG, 1-0-1
     Route: 048
     Dates: start: 20091215, end: 20160415
  10. TILICOMP [Concomitant]
     Indication: Arthralgia
     Dosage: TILIDIN 100MG, NALOXON 8 MG, AS NEEDED
     Route: 048
     Dates: start: 20060101, end: 20150701
  11. PANTOZOL [Concomitant]
     Active Substance: PANTOPRAZOLE SODIUM
     Indication: Gastritis
     Dosage: 40 MG, 1X A DAY
     Route: 048
     Dates: start: 20150723
  12. ETORICOXIB [Concomitant]
     Active Substance: ETORICOXIB
     Indication: Arthropathy
     Dosage: 60 MILLIGRAM
     Route: 048
     Dates: start: 20100401, end: 20120101
  13. SERTRALINE HYDROCHLORIDE [Concomitant]
     Active Substance: SERTRALINE HYDROCHLORIDE
     Indication: Depression
     Dosage: 50 MILLIGRAM, QD
     Route: 048
     Dates: start: 20160301, end: 20160601
  14. IBUPROFEN [Concomitant]
     Active Substance: IBUPROFEN
     Indication: Analgesic therapy
     Dosage: 600 MILLIGRAM
     Route: 048
     Dates: start: 20100101
  15. TRUVADA [Concomitant]
     Active Substance: EMTRICITABINE\TENOFOVIR DISOPROXIL FUMARATE
     Indication: Antiretroviral therapy
     Dosage: UNK, QD
     Route: 048
     Dates: start: 20160416, end: 2016
  16. ETRAVIRINE [Concomitant]
     Active Substance: ETRAVIRINE
     Indication: Antiretroviral therapy
     Dosage: 200 MILLIGRAM, BID
     Route: 048
     Dates: start: 20160416
  17. DESCOVY [Concomitant]
     Active Substance: EMTRICITABINE\TENOFOVIR ALAFENAMIDE FUMARATE
     Indication: HIV antibody
     Dosage: 200 MILLIGRAM, QD
     Route: 048
     Dates: start: 201701
  18. PREZISTA [Concomitant]
     Active Substance: DARUNAVIR ETHANOLATE
     Indication: HIV antibody
     Dosage: 800 MILLIGRAM, QD
     Route: 048
     Dates: start: 201606
  19. TYBOST [Concomitant]
     Active Substance: COBICISTAT
     Indication: HIV antibody
     Dosage: 150 MILLIGRAM, QD
     Route: 048
     Dates: start: 201606
  20. TRAMADOL [Concomitant]
     Active Substance: TRAMADOL
     Indication: Analgesic therapy
     Dosage: 100 MILLIGRAM PER MILLILITRE
     Route: 048
     Dates: start: 201605

REACTIONS (1)
  - Gastritis [Not Recovered/Not Resolved]

NARRATIVE: CASE EVENT DATE: 20150723
